FAERS Safety Report 21016908 (Version 10)
Quarter: 2023Q2

REPORT INFORMATION
  Report Type: Report from Study
  Country: US (occurrence: US)
  Receive Date: 20220628
  Receipt Date: 20230630
  Transmission Date: 20230721
  Serious: Yes (Hospitalization, Other)
  Sender: FDA-Public Use
  Company Number: US-JAZZ-2022-US-012267

PATIENT
  Age: 5 Year
  Sex: Male

DRUGS (14)
  1. EPIDIOLEX [Suspect]
     Active Substance: CANNABIDIOL
     Indication: Epilepsy
     Dosage: 1.5 MILLILITER, BID
     Route: 048
     Dates: start: 20220221
  2. EPIDIOLEX [Suspect]
     Active Substance: CANNABIDIOL
     Indication: Seizure
     Dosage: 2 MILLILITER, BID
     Route: 048
     Dates: start: 20220217
  3. EPIDIOLEX [Suspect]
     Active Substance: CANNABIDIOL
     Dosage: 200 MILLIGRAM, BID
     Route: 048
     Dates: start: 202202
  4. DIVALPROEX SODIUM [Suspect]
     Active Substance: DIVALPROEX SODIUM
     Indication: Product used for unknown indication
     Dosage: SPRINKLES
  5. DIASTAT [Concomitant]
     Active Substance: DIAZEPAM
     Indication: Product used for unknown indication
     Dosage: UNK
  6. KEPPRA [Concomitant]
     Active Substance: LEVETIRACETAM
     Indication: Product used for unknown indication
     Dosage: UNK
  7. CLOBAZAM [Concomitant]
     Active Substance: CLOBAZAM
     Indication: Product used for unknown indication
     Dosage: UNK
  8. ZYRTEC [Concomitant]
     Active Substance: CETIRIZINE HYDROCHLORIDE
     Indication: Product used for unknown indication
     Dosage: 10 MG DISSOLVABLE TABLET
  9. ZYRTEC [Concomitant]
     Active Substance: CETIRIZINE HYDROCHLORIDE
     Dosage: 10 MG OTC
  10. MIRALAX [Concomitant]
     Active Substance: POLYETHYLENE GLYCOL 3350
     Indication: Product used for unknown indication
     Dosage: 119 GRAM
  11. VALPROIC ACID [Concomitant]
     Active Substance: VALPROIC ACID
     Indication: Product used for unknown indication
     Dosage: 250MILLIGRAM/5MILLILITER
  12. VALPROIC ACID [Concomitant]
     Active Substance: VALPROIC ACID
     Dosage: 250MILLIGRAM/5MILLILITER
  13. CHILDRENS BENADRYL ALLERGY [Concomitant]
     Active Substance: DIPHENHYDRAMINE HYDROCHLORIDE
     Indication: Product used for unknown indication
  14. PEDIA-LAX (DOCUSATE SODIUM) [Concomitant]
     Active Substance: DOCUSATE SODIUM
     Indication: Product used for unknown indication

REACTIONS (15)
  - Seizure [Recovering/Resolving]
  - Pneumonia respiratory syncytial viral [Recovered/Resolved]
  - Upper respiratory tract infection [Recovered/Resolved]
  - Ear infection [Not Recovered/Not Resolved]
  - Eye infection [Not Recovered/Not Resolved]
  - Intestinal obstruction [Recovered/Resolved]
  - Nausea [Not Recovered/Not Resolved]
  - Vomiting [Not Recovered/Not Resolved]
  - Viral upper respiratory tract infection [Not Recovered/Not Resolved]
  - Constipation [Not Recovered/Not Resolved]
  - Mood swings [Unknown]
  - Sleep terror [Not Recovered/Not Resolved]
  - Somnolence [Recovering/Resolving]
  - Decreased appetite [Not Recovered/Not Resolved]
  - Syringe issue [Unknown]

NARRATIVE: CASE EVENT DATE: 20220502
